FAERS Safety Report 18286291 (Version 1)
Quarter: 2020Q3

REPORT INFORMATION
  Report Type: Spontaneous
  Country: FR (occurrence: FR)
  Receive Date: 20200920
  Receipt Date: 20200920
  Transmission Date: 20201103
  Serious: Yes (Life-Threatening, Hospitalization, Other)
  Sender: FDA-Public Use
  Company Number: FR-LUPIN PHARMACEUTICALS INC.-2020-06140

PATIENT
  Age: 73 Year
  Sex: Male

DRUGS (20)
  1. CIPROFLOXACIN. [Suspect]
     Active Substance: CIPROFLOXACIN
     Indication: ANTIBIOTIC THERAPY
     Dosage: 750 MILLIGRAM
     Route: 065
  2. IDARUBICIN [Suspect]
     Active Substance: IDARUBICIN
     Indication: CHEMOTHERAPY
     Dosage: INDUCTION CHEMOTHERAPY
     Route: 065
  3. MEROPENEM. [Suspect]
     Active Substance: MEROPENEM
     Indication: AEROMONAS INFECTION
  4. AMIKACIN. [Concomitant]
     Active Substance: AMIKACIN
     Indication: AEROMONAS INFECTION
  5. LOMUSTIN [Suspect]
     Active Substance: LOMUSTINE
     Indication: CHEMOTHERAPY
     Dosage: UNK
     Route: 065
  6. LOMUSTIN [Suspect]
     Active Substance: LOMUSTINE
     Indication: ACUTE MYELOID LEUKAEMIA
  7. ARACYTIN [Suspect]
     Active Substance: CYTARABINE
     Indication: ACUTE MYELOID LEUKAEMIA
     Dosage: CONSOLIDATION CHEMOTHERAPY COURSE
     Route: 065
  8. VANCOMYCIN [Concomitant]
     Active Substance: VANCOMYCIN
     Indication: ANTIBIOTIC THERAPY
     Dosage: 2 GRAM, QD
     Route: 065
  9. PIPERACILLIN/TAZOBACTAM [Concomitant]
     Active Substance: PIPERACILLIN SODIUM\TAZOBACTAM SODIUM
     Indication: ANTIBIOTIC THERAPY
     Dosage: PIPERACILLIN/TAZOBACTAM 4 G/500 MG FOUR TIMES A DAY (QID)
     Route: 065
  10. CIPROFLOXACIN. [Suspect]
     Active Substance: CIPROFLOXACIN
     Indication: AEROMONAS INFECTION
  11. AZACITIDINE. [Suspect]
     Active Substance: AZACITIDINE
     Indication: CHEMOTHERAPY
     Dosage: 75 MILLIGRAM/SQ. METER, QD (AZACYTIDINE 75 MG/M2 /DAY FOR A SEVEN?DAY PERIOD AND EVERY 28 DAYS; RECE
     Route: 065
  12. AMIKACIN. [Concomitant]
     Active Substance: AMIKACIN
     Indication: ANTIBIOTIC THERAPY
     Dosage: SINGLE DOSE
     Route: 065
  13. MEROPENEM. [Suspect]
     Active Substance: MEROPENEM
     Indication: EVIDENCE BASED TREATMENT
     Dosage: 6 GRAM, QD
     Route: 065
  14. PIPERACILLIN/TAZOBACTAM [Concomitant]
     Active Substance: PIPERACILLIN SODIUM\TAZOBACTAM SODIUM
     Indication: AEROMONAS INFECTION
  15. CEFEPIME [Concomitant]
     Active Substance: CEFEPIME HYDROCHLORIDE
     Indication: AEROMONAS INFECTION
  16. IDARUBICIN [Suspect]
     Active Substance: IDARUBICIN
     Indication: ACUTE MYELOID LEUKAEMIA
     Dosage: CONSOLIDATION CHEMOTHERAPY COURSE
     Route: 065
  17. AZACITIDINE. [Suspect]
     Active Substance: AZACITIDINE
     Indication: ACUTE MYELOID LEUKAEMIA
  18. VANCOMYCIN [Concomitant]
     Active Substance: VANCOMYCIN
     Indication: AEROMONAS INFECTION
  19. ARACYTIN [Suspect]
     Active Substance: CYTARABINE
     Indication: CHEMOTHERAPY
     Dosage: INDUCTION CHEMOTHERAPY
     Route: 065
  20. CEFEPIME [Concomitant]
     Active Substance: CEFEPIME HYDROCHLORIDE
     Indication: ANTIBIOTIC THERAPY
     Dosage: 6 GRAM, QD
     Route: 065

REACTIONS (6)
  - Abscess limb [Recovered/Resolved]
  - Pathogen resistance [Unknown]
  - Abscess bacterial [Recovered/Resolved]
  - Septic shock [Recovered/Resolved]
  - Necrotising fasciitis [Recovered/Resolved]
  - Aeromonas infection [Recovered/Resolved]
